FAERS Safety Report 15734398 (Version 1)
Quarter: 2018Q4

REPORT INFORMATION
  Report Type: Spontaneous
  Country: US (occurrence: US)
  Receive Date: 20181203
  Receipt Date: 20181203
  Transmission Date: 20190205
  Serious: Yes (Disabling)
  Sender: FDA-Public Use
  Company Number: None

PATIENT
  Age: 49 Year
  Sex: Female
  Weight: 46.8 kg

DRUGS (19)
  1. ACETYL-L-CARNITINE [Concomitant]
  2. L-GLUTAMINE [Concomitant]
  3. COENZYME Q10 [Concomitant]
     Active Substance: UBIDECARENONE
  4. FLUDROCORTISONE [Concomitant]
     Active Substance: FLUDROCORTISONE
  5. FISH OIL [Concomitant]
     Active Substance: FISH OIL
  6. ZALEPLON. [Concomitant]
     Active Substance: ZALEPLON
  7. VITAMINS [Concomitant]
     Active Substance: VITAMINS
  8. BIOTIN [Concomitant]
     Active Substance: BIOTIN
  9. MAGNESIUM [Concomitant]
     Active Substance: MAGNESIUM
  10. LO LOESTRIN FE [Concomitant]
     Active Substance: ETHINYL ESTRADIOL\NORETHINDRONE ACETATE
  11. ZINC. [Concomitant]
     Active Substance: ZINC
  12. MYCELLIZED VITAMIN D [Concomitant]
  13. ESTER C [Concomitant]
  14. CLONAZEPAM. [Concomitant]
     Active Substance: CLONAZEPAM
  15. PANCREATIN [Concomitant]
     Active Substance: PANCRELIPASE
  16. FLUDROCORTISONE 0.1MG TABLET [Suspect]
     Active Substance: FLUDROCORTISONE
     Indication: POSTURAL ORTHOSTATIC TACHYCARDIA SYNDROME
     Dosage: ?          QUANTITY:2 TABLET(S);?
     Route: 048
     Dates: start: 20180906, end: 20181005
  17. VITAMIN B COMPLEX [Concomitant]
     Active Substance: CYANOCOBALAMIN\DEXPANTHENOL\NIACINAMIDE\PYRIDOXINE HYDROCHLORIDE\RIBOFLAVIN 5^-PHOSPHATE SODIUM\THIAMINE HYDROCHLORIDE\VITAMIN B COMPLEX
  18. TOPIRAMATE. [Concomitant]
     Active Substance: TOPIRAMATE
  19. VITAMIN B2 [Concomitant]
     Active Substance: RIBOFLAVIN

REACTIONS (7)
  - Blood pressure decreased [None]
  - Palpitations [None]
  - Asthenia [None]
  - Dizziness [None]
  - Product substitution issue [None]
  - Muscular weakness [None]
  - Limb discomfort [None]

NARRATIVE: CASE EVENT DATE: 20180929
